FAERS Safety Report 8448484-6 (Version None)
Quarter: 2012Q2

REPORT INFORMATION
  Report Type: 
  Country: None (occurrence: None)
  Receive Date: 20120619
  Receipt Date: 20120615
  Transmission Date: 20120825
  Serious: Yes (Death)
  Sender: FDA-Public Use
  Company Number: US-B.I. PHARMACEUTICALS,INC./RIDGEFIELD-2012-BP-13890BP

PATIENT
  Sex: Male

DRUGS (1)
  1. TRADJENTA [Suspect]

REACTIONS (1)
  - DEATH [None]
